FAERS Safety Report 16072497 (Version 1)
Quarter: 2019Q1

REPORT INFORMATION
  Report Type: Report from Study
  Country: ES (occurrence: ES)
  Receive Date: 20190314
  Receipt Date: 20190314
  Transmission Date: 20190418
  Serious: Yes (Hospitalization)
  Sender: FDA-Public Use
  Company Number: ES-TEVA-2019-ES-1023165

PATIENT
  Age: 4 Year
  Sex: Male
  Weight: 16.1 kg

DRUGS (2)
  1. CICLOSPORINA (406A) [Suspect]
     Active Substance: CYCLOSPORINE
     Indication: IMMUNOSUPPRESSION
     Route: 048
     Dates: start: 20171120
  2. ESTILSONA 7 MG/ML GOTAS ORALES EN SUSPENSION, 1 FRASCO DE 10 ML [Interacting]
     Active Substance: PREDNISOLONE STEAGLATE
     Indication: IMMUNOSUPPRESSION
     Dosage: ORAL DROPS IN SUSPENSION, 1 JAR OF 10 ML
     Route: 048
     Dates: start: 20171221

REACTIONS (2)
  - Adenovirus infection [Recovered/Resolved]
  - Drug interaction [Unknown]

NARRATIVE: CASE EVENT DATE: 20180213
